FAERS Safety Report 5121617-5 (Version None)
Quarter: 2006Q4

REPORT INFORMATION
  Report Type: 
  Country: None (occurrence: None)
  Receive Date: 20061006
  Receipt Date: 20060926
  Transmission Date: 20070319
  Serious: Yes (Disabling)
  Sender: FDA-Public Use
  Company Number: GB-AVENTIS-200620122GDDC

PATIENT
  Age: 75 Year
  Sex: Female

DRUGS (5)
  1. NASACORT [Suspect]
     Indication: NASOPHARYNGITIS
     Dosage: DOSE: 1 DF
     Dates: start: 20060830, end: 20060907
  2. ATENOLOL [Concomitant]
     Route: 048
  3. BENDROFLUAZIDE [Concomitant]
     Route: 048
  4. LEVOTHYROXINE SODIUM [Concomitant]
     Route: 048
  5. SIMVASTATIN [Concomitant]
     Route: 048

REACTIONS (2)
  - CONDITION AGGRAVATED [None]
  - MIGRAINE [None]
